FAERS Safety Report 6291575-9 (Version None)
Quarter: 2009Q3

REPORT INFORMATION
  Report Type: 
  Country: None (occurrence: None)
  Receive Date: 20090730
  Receipt Date: 20090720
  Transmission Date: 20100115
  Serious: Yes (Death)
  Sender: FDA-Public Use
  Company Number: US-ELI_LILLY_AND_COMPANY-US200907004193

PATIENT
  Sex: Male

DRUGS (1)
  1. SYMBYAX [Suspect]
     Dosage: 1 D/F, UNK

REACTIONS (1)
  - SUDDEN CARDIAC DEATH [None]
